FAERS Safety Report 13650807 (Version 1)
Quarter: 2017Q2

REPORT INFORMATION
  Report Type: Report from Study
  Country: US (occurrence: US)
  Receive Date: 20170614
  Receipt Date: 20170614
  Transmission Date: 20170830
  Serious: Yes (Death)
  Sender: FDA-Public Use
  Company Number: US-TORRENT-00002932

PATIENT
  Age: 62 Year
  Sex: Female

DRUGS (7)
  1. HYDROCHLOROTHIAZIDE. [Suspect]
     Active Substance: HYDROCHLOROTHIAZIDE
  2. GLUCAGON. [Suspect]
     Active Substance: GLUCAGON
  3. AMLODIPINE [Suspect]
     Active Substance: AMLODIPINE BESYLATE
  4. TRIAMTERENE. [Suspect]
     Active Substance: TRIAMTERENE
  5. CLONIDINE. [Suspect]
     Active Substance: CLONIDINE
  6. METOPROLOL. [Suspect]
     Active Substance: METOPROLOL
  7. CANDESARTAN. [Suspect]
     Active Substance: CANDESARTAN

REACTIONS (2)
  - Toxicity to various agents [Fatal]
  - Completed suicide [Fatal]
